FAERS Safety Report 4788713-3 (Version None)
Quarter: 2005Q4

REPORT INFORMATION
  Report Type: 
  Country: None (occurrence: None)
  Receive Date: 20051005
  Receipt Date: 20050927
  Transmission Date: 20060501
  Serious: Yes (Hospitalization)
  Sender: FDA-Public Use
  Company Number: US-ROCHE-419415

PATIENT
  Age: 48 Year
  Sex: Female

DRUGS (4)
  1. PEGASYS [Suspect]
     Indication: HEPATITIS C
     Route: 058
     Dates: start: 20050727
  2. COPEGUS [Suspect]
     Indication: HEPATITIS C
     Route: 048
     Dates: start: 20050727
  3. PAXIL [Concomitant]
     Indication: DEPRESSION
     Dosage: DAILY.
     Route: 048
  4. LUNESTA [Concomitant]
     Indication: INSOMNIA
     Dosage: BEFORE BED.
     Dates: start: 20050730

REACTIONS (12)
  - AGITATION [None]
  - ANAEMIA [None]
  - DYSPNOEA EXERTIONAL [None]
  - FATIGUE [None]
  - HYPERHIDROSIS [None]
  - INFLUENZA LIKE ILLNESS [None]
  - INSOMNIA [None]
  - MITRAL VALVE INCOMPETENCE [None]
  - MUSCLE SPASMS [None]
  - NERVOUSNESS [None]
  - PALPITATIONS [None]
  - SYNCOPE [None]
